FAERS Safety Report 7321762-X (Version None)
Quarter: 2011Q1

REPORT INFORMATION
  Report Type: 
  Country: None (occurrence: None)
  Receive Date: 20110215
  Receipt Date: 20110204
  Transmission Date: 20110831
  Serious: Yes (Hospitalization)
  Sender: FDA-Public Use
  Company Number: 2011SP000395

PATIENT
  Age: 40 Year
  Sex: Female

DRUGS (2)
  1. ALVESCO [Suspect]
     Dosage: ;INHALATION
     Route: 055
  2. QVAR 40 [Concomitant]

REACTIONS (2)
  - BLOOD PRESSURE INCREASED [None]
  - TACHYCARDIA [None]
